FAERS Safety Report 11730622 (Version 1)
Quarter: 2015Q4

REPORT INFORMATION
  Report Type: Spontaneous
  Country: US (occurrence: US)
  Receive Date: 20151110
  Receipt Date: 20151110
  Transmission Date: 20160304
  Serious: No
  Sender: FDA-Public Use
  Company Number: US-ELI_LILLY_AND_COMPANY-US201111006410

PATIENT
  Age: 83 Year
  Sex: Female

DRUGS (1)
  1. FORTEO [Suspect]
     Active Substance: TERIPARATIDE
     Indication: OSTEOPOROSIS
     Dosage: 20 UG, QD
     Dates: end: 201111

REACTIONS (15)
  - Asthenia [Unknown]
  - Sleep disorder [Unknown]
  - Feeling cold [Unknown]
  - Pain [Unknown]
  - Balance disorder [Unknown]
  - Malaise [Unknown]
  - Peripheral swelling [Unknown]
  - Joint swelling [Unknown]
  - Headache [Unknown]
  - Drug ineffective [Unknown]
  - Feeling hot [Unknown]
  - Hypersensitivity [Unknown]
  - Bone pain [Unknown]
  - Pain in extremity [Unknown]
  - Dizziness [Unknown]

NARRATIVE: CASE EVENT DATE: 201111
